FAERS Safety Report 5123119-9 (Version None)
Quarter: 2006Q4

REPORT INFORMATION
  Report Type: 
  Country: None (occurrence: None)
  Receive Date: 20061004
  Receipt Date: 20061004
  Transmission Date: 20070319
  Serious: Yes (Hospitalization)
  Sender: FDA-Public Use
  Company Number: None

PATIENT
  Age: 58 Year
  Sex: Male
  Weight: 64.9 kg

DRUGS (1)
  1. LITHIUM 150 MG [Suspect]
     Indication: BIPOLAR DISORDER
     Dosage: 150 MG PO BID
     Route: 048
     Dates: start: 20051129, end: 20060629

REACTIONS (2)
  - RENAL FAILURE ACUTE [None]
  - THERAPEUTIC AGENT TOXICITY [None]
